FAERS Safety Report 10592330 (Version 2)
Quarter: 2015Q2

REPORT INFORMATION
  Report Type: Spontaneous
  Country: FR (occurrence: None)
  Receive Date: 20141117
  Receipt Date: 20150611
  Transmission Date: 20150821
  Serious: Yes (Hospitalization, Other)
  Sender: FDA-Public Use
  Company Number: B0869923A

PATIENT
  Age: 60 Year
  Sex: Male
  Weight: 58.7 kg

DRUGS (9)
  1. PREZISTA [Suspect]
     Active Substance: DARUNAVIR ETHANOLATE
     Indication: HIV INFECTION
     Dates: start: 20130116
  2. BACTRIM (SULFAMETHOXAZOLE + TRIMETHOPRIM) UNKNOWN [Concomitant]
  3. TIORFAN (RACECADOTRIL) UNKNOWN [Concomitant]
  4. MARAVIROC [Suspect]
     Active Substance: MARAVIROC
     Indication: HIV INFECTION
     Dosage: 150 DF, TID?
     Dates: start: 20130116
  5. NORVIR [Suspect]
     Active Substance: RITONAVIR
     Indication: HIV INFECTION
     Dates: start: 20130116
  6. SMECTA (SECTITE) UNKNOWN [Concomitant]
  7. INEXIUM (ESOMEPRAZOLE MAGNESIUM) UNKNOWN [Concomitant]
  8. KIVEXA [Suspect]
     Active Substance: ABACAVIR SULFATE\LAMIVUDINE
  9. TRUVADA [Suspect]
     Active Substance: EMTRICITABINE\TENOFOVIR DISOPROXIL FUMARATE
     Indication: HIV INFECTION
     Dates: start: 20130116

REACTIONS (9)
  - Diarrhoea [None]
  - Muscle atrophy [None]
  - Immunosuppression [None]
  - Malabsorption [None]
  - Steatorrhoea [None]
  - Xerosis [None]
  - Cytomegalovirus colitis [None]
  - Malnutrition [None]
  - Weight decreased [None]

NARRATIVE: CASE EVENT DATE: 20130205
